FAERS Safety Report 18108546 (Version 4)
Quarter: 2020Q3

REPORT INFORMATION
  Report Type: Spontaneous
  Country: ES (occurrence: ES)
  Receive Date: 20200803
  Receipt Date: 20200819
  Transmission Date: 20201103
  Serious: Yes (Other)
  Sender: FDA-Public Use
  Company Number: ES-UCBSA-2020030084

PATIENT
  Age: 71 Year
  Sex: Female

DRUGS (7)
  1. ROTIGOTINE [Suspect]
     Active Substance: ROTIGOTINE
     Indication: PRODUCT USED FOR UNKNOWN INDICATION
     Dosage: UNK
     Dates: start: 20200714, end: 202007
  2. ROTIGOTINE [Suspect]
     Active Substance: ROTIGOTINE
     Dosage: DOSE DECREASED
     Dates: start: 202007
  3. DUODOPA [Suspect]
     Active Substance: CARBIDOPA\LEVODOPA
     Dosage: CONTINUOUS DOSE LOWERED TO 4.8 ML / H
     Dates: start: 20200730
  4. DUODOPA [Suspect]
     Active Substance: CARBIDOPA\LEVODOPA
     Indication: PARKINSON^S DISEASE
     Dosage: DRUG WAS LOWERED
     Route: 050
  5. DUODOPA [Suspect]
     Active Substance: CARBIDOPA\LEVODOPA
     Dosage: UNK
     Dates: start: 20180418, end: 20200728
  6. RIVOTRIL [Concomitant]
     Active Substance: CLONAZEPAM
     Indication: SLEEP DISORDER THERAPY
     Dates: end: 2020
  7. DUODOPA [Suspect]
     Active Substance: CARBIDOPA\LEVODOPA
     Dosage: INCREASE THE CONTINUOUS DOSE TO 4.9ML/H
     Dates: start: 20200728, end: 20200730

REACTIONS (5)
  - Loss of personal independence in daily activities [Unknown]
  - Freezing phenomenon [Recovering/Resolving]
  - Hallucinations, mixed [Recovered/Resolved]
  - Dyskinesia [Unknown]
  - Paranoia [Recovered/Resolved]

NARRATIVE: CASE EVENT DATE: 2020
